FAERS Safety Report 18932534 (Version 5)
Quarter: 2021Q3

REPORT INFORMATION
  Report Type: Spontaneous
  Country: US (occurrence: US)
  Receive Date: 20210224
  Receipt Date: 20210907
  Transmission Date: 20211014
  Serious: Yes (Other)
  Sender: FDA-Public Use
  Company Number: US-BAYER-2021-069355

PATIENT
  Age: 43 Year
  Sex: Female

DRUGS (2)
  1. MIRENA [Suspect]
     Active Substance: LEVONORGESTREL
     Indication: HEAVY MENSTRUAL BLEEDING
     Dosage: 20 ?G PER DAY, CONTINUOUSLY
     Route: 015
     Dates: start: 20201022, end: 20210104
  2. JARDIANCE [Concomitant]
     Active Substance: EMPAGLIFLOZIN
     Indication: DIABETES MELLITUS
     Dosage: UNK
     Dates: start: 20201022

REACTIONS (27)
  - Urinary tract infection [None]
  - Headache [Recovering/Resolving]
  - Back pain [None]
  - Pelvic pain [Not Recovered/Not Resolved]
  - Uterine scar [None]
  - Abdominal pain [Recovering/Resolving]
  - Stress [Not Recovered/Not Resolved]
  - Drug ineffective [Recovering/Resolving]
  - Weight decreased [Recovering/Resolving]
  - Amnesia [Recovering/Resolving]
  - Device expulsion [Recovered/Resolved]
  - Dyspareunia [None]
  - Malaise [None]
  - Rectal discharge [None]
  - Colitis [Recovering/Resolving]
  - Haematuria [None]
  - Vomiting [Recovering/Resolving]
  - Anxiety [Recovering/Resolving]
  - Vaginal haemorrhage [None]
  - Dysmenorrhoea [None]
  - Diarrhoea haemorrhagic [Recovering/Resolving]
  - Nausea [Recovering/Resolving]
  - Loss of personal independence in daily activities [None]
  - Depression [Recovering/Resolving]
  - Menstruation irregular [None]
  - Pyrexia [None]
  - Gait inability [None]

NARRATIVE: CASE EVENT DATE: 20201022
